FAERS Safety Report 21226420 (Version 1)
Quarter: 2022Q3

REPORT INFORMATION
  Report Type: Report from Study
  Country: US (occurrence: US)
  Receive Date: 20220818
  Receipt Date: 20220818
  Transmission Date: 20221026
  Serious: Yes (Life-Threatening, Other)
  Sender: FDA-Public Use
  Company Number: US-BRISTOL-MYERS SQUIBB COMPANY-2022-086384

PATIENT
  Age: 51 Year
  Sex: Female
  Weight: 111.5 kg

DRUGS (1)
  1. REVLIMID [Suspect]
     Active Substance: LENALIDOMIDE
     Indication: Plasma cell myeloma
     Route: 048
     Dates: start: 20210302

REACTIONS (4)
  - Gastritis [Unknown]
  - Dyspnoea [Unknown]
  - Wheezing [Unknown]
  - Menstrual disorder [Unknown]

NARRATIVE: CASE EVENT DATE: 20191201
